FAERS Safety Report 15949216 (Version 1)
Quarter: 2019Q1

REPORT INFORMATION
  Report Type: Spontaneous
  Country: CH (occurrence: CH)
  Receive Date: 20190212
  Receipt Date: 20190212
  Transmission Date: 20190417
  Serious: Yes (Hospitalization, Other)
  Sender: FDA-Public Use
  Company Number: CH-BAXTER-2019BAX002589

PATIENT
  Age: 42 Year
  Sex: Female

DRUGS (34)
  1. CRESEMBA [Suspect]
     Active Substance: ISAVUCONAZONIUM SULFATE
     Indication: BRONCHOPULMONARY ASPERGILLOSIS
     Dosage: ANTIFUNGAL THERAPY OF THE ASPERGILLOSIS (NOTE: THE THERAPY WITH CANCIDAS COULD NOT DUE TO SEVERAL)
     Route: 048
     Dates: start: 20181113, end: 20190101
  2. FLUDARABIN TEVA [Suspect]
     Active Substance: FLUDARABINE PHOSPHATE
     Indication: STEM CELL TRANSPLANT
     Dosage: 50 MG/M2/DAY; DAY 2 TO DAY 4
     Route: 041
     Dates: start: 20181224, end: 20181226
  3. POSACONAZOL [Concomitant]
     Active Substance: POSACONAZOLE
     Indication: BRONCHOPULMONARY ASPERGILLOSIS
     Route: 065
     Dates: start: 20181025, end: 20181101
  4. CELLCEPT [Concomitant]
     Active Substance: MYCOPHENOLATE MOFETIL\MYCOPHENOLATE MOFETIL HYDROCHLORIDE
     Indication: PRODUCT USED FOR UNKNOWN INDICATION
     Dosage: 2X
     Route: 065
     Dates: start: 20190110, end: 20190119
  5. SUPRADYN ENERGY [Concomitant]
     Active Substance: MINERALS\VITAMINS
     Indication: PRODUCT USED FOR UNKNOWN INDICATION
     Route: 065
     Dates: start: 20181219, end: 20190106
  6. SMOFKABIVEN [Concomitant]
     Active Substance: AMINO ACIDS\DEXTROSE\ELECTROLYTES NOS\SOYBEAN OIL
     Indication: PRODUCT USED FOR UNKNOWN INDICATION
     Route: 065
  7. ENDOXAN 1 G. TROCKENSUBSTANZ ZUR INTRAVEN?SEN INFUSION [Suspect]
     Active Substance: CYCLOPHOSPHAMIDE
     Indication: PROPHYLAXIS AGAINST GRAFT VERSUS HOST DISEASE
     Dosage: 50 MG/KG/DAY; HIGH DOSE
     Route: 041
     Dates: start: 201812, end: 201901
  8. THIOTEPA. [Suspect]
     Active Substance: THIOTEPA
     Indication: STEM CELL TRANSPLANT
     Dosage: 5 MG/KG/DAY; DAY 5 TO DAY 6
     Route: 041
     Dates: start: 20181222, end: 20181223
  9. AMSIDYL [Suspect]
     Active Substance: AMSACRINE
     Indication: ACUTE MYELOID LEUKAEMIA
     Dosage: INDUCTION CHEMOTHERAPY; DAY 4 TO DAY 6
     Route: 065
     Dates: start: 20181017, end: 20181022
  10. VALTREX [Concomitant]
     Active Substance: VALACYCLOVIR HYDROCHLORIDE
     Dosage: TABLET; INCREASED TO 2-2-2
     Route: 048
     Dates: start: 20181219
  11. HEPARIN SODIUM. [Concomitant]
     Active Substance: HEPARIN SODIUM
     Indication: PRODUCT USED FOR UNKNOWN INDICATION
     Route: 041
     Dates: start: 20181222, end: 20190114
  12. ZARZIO [Concomitant]
     Active Substance: FILGRASTIM
     Indication: PRODUCT USED FOR UNKNOWN INDICATION
     Dosage: 30 MIO E
     Route: 065
     Dates: start: 20190104, end: 20190112
  13. CYTARABIN [Suspect]
     Active Substance: CYTARABINE
     Dosage: DAY 1 TO DAY 6; INDUCTION CHEMOTHERAPY
     Route: 065
     Dates: start: 20181017, end: 20181022
  14. URSOFALK [Concomitant]
     Active Substance: URSODIOL
     Indication: PRODUCT USED FOR UNKNOWN INDICATION
     Route: 048
     Dates: start: 20181222
  15. KALIUM CHLORID [Concomitant]
     Indication: PRODUCT USED FOR UNKNOWN INDICATION
     Route: 065
     Dates: start: 20181226
  16. SOLUVIT [Concomitant]
     Active Substance: VITAMINS
     Indication: PRODUCT USED FOR UNKNOWN INDICATION
     Route: 042
     Dates: start: 20190106, end: 20190115
  17. VORICONAZOL [Concomitant]
     Active Substance: VORICONAZOLE
     Indication: BRONCHOPULMONARY ASPERGILLOSIS
     Route: 065
     Dates: start: 20180913, end: 20181003
  18. MAGNESIOCARD ORANGE [Concomitant]
     Indication: PRODUCT USED FOR UNKNOWN INDICATION
     Route: 065
  19. TOREM [Concomitant]
     Active Substance: TORSEMIDE
     Indication: PRODUCT USED FOR UNKNOWN INDICATION
     Route: 065
     Dates: start: 20181226, end: 20181227
  20. BUSILVEX [Suspect]
     Active Substance: BUSULFAN
     Indication: STEM CELL TRANSPLANT
     Dosage: 8 MG/KG/6-STDL; DAY 2 TO DAY 4
     Route: 041
     Dates: start: 20181224, end: 20181226
  21. PANTOZOL [Concomitant]
     Active Substance: PANTOPRAZOLE SODIUM
     Indication: PROPHYLAXIS AGAINST GASTROINTESTINAL ULCER
     Dosage: TABLET
     Route: 048
     Dates: start: 201808
  22. CANCIDAS [Concomitant]
     Active Substance: CASPOFUNGIN ACETATE
     Indication: BRONCHOPULMONARY ASPERGILLOSIS
     Route: 065
     Dates: start: 20181018, end: 20181025
  23. CANCIDAS [Concomitant]
     Active Substance: CASPOFUNGIN ACETATE
     Route: 065
     Dates: start: 20181102, end: 20181112
  24. VITALIPID [Concomitant]
     Active Substance: ERGOCALCIFEROL\PHYTONADIONE\RETINOL\TOCOPHEROL
     Indication: PRODUCT USED FOR UNKNOWN INDICATION
     Route: 065
  25. DIFLUCAN [Concomitant]
     Active Substance: FLUCONAZOLE
     Indication: ANTIFUNGAL TREATMENT
     Dosage: LOW DOSES
     Route: 065
  26. VALTREX [Concomitant]
     Active Substance: VALACYCLOVIR HYDROCHLORIDE
     Indication: GENITAL HERPES
     Dosage: TABLET
     Route: 048
     Dates: start: 201807
  27. G-CSF [Concomitant]
     Active Substance: GRANULOCYTE COLONY-STIMULATING FACTOR NOS
     Indication: SUPPORTIVE CARE
     Dosage: SINCE DAY 5
     Route: 065
  28. IDARUBICIN [Suspect]
     Active Substance: IDARUBICIN
     Indication: ACUTE MYELOID LEUKAEMIA
     Dosage: DAY 1 TO DAY 3; INDUCTION CHEMOTHERAPY
     Route: 065
     Dates: start: 20180828, end: 20180905
  29. CYTARABIN [Suspect]
     Active Substance: CYTARABINE
     Indication: ACUTE MYELOID LEUKAEMIA
     Dosage: DAY 1 TO DAY 7; INDUCTION CHEMOTHERAPY
     Route: 065
     Dates: start: 20180828, end: 20180905
  30. NOPIL [Concomitant]
     Active Substance: SULFAMETHOXAZOLE\TRIMETHOPRIM
     Indication: ANTIBIOTIC PROPHYLAXIS
     Dosage: 800 MG/160 MG; MON, WED, FRI
     Route: 048
     Dates: start: 201809
  31. VITAMIN D3 STREULI [Concomitant]
     Active Substance: CHOLECALCIFEROL
     Indication: VITAMIN D DEFICIENCY
     Dosage: 4000 IE/ML 5600 I.E. (CORRESPONDS TO 1.4 ML) SATURDAYS
     Route: 048
  32. PRIMOLUT N [Concomitant]
     Active Substance: NORETHINDRONE
     Indication: PRODUCT USED FOR UNKNOWN INDICATION
     Dosage: INCREASED TO 1-1-1 SINCE 19DEC2018
     Route: 065
  33. ADDAVEN [Concomitant]
     Active Substance: ELECTROLYTES NOS\MINERALS
     Indication: PRODUCT USED FOR UNKNOWN INDICATION
     Route: 065
  34. SANDIMMUN [Concomitant]
     Active Substance: CYCLOSPORINE
     Indication: PRODUCT USED FOR UNKNOWN INDICATION
     Route: 065
     Dates: start: 20190104

REACTIONS (6)
  - Pharyngeal inflammation [Unknown]
  - Device related infection [Unknown]
  - Drug-induced liver injury [Recovering/Resolving]
  - Clostridium difficile colitis [Recovered/Resolved]
  - Oesophagitis [Unknown]
  - Blood culture positive [Unknown]

NARRATIVE: CASE EVENT DATE: 20181226
